FAERS Safety Report 9263671 (Version 3)
Quarter: 2013Q3

REPORT INFORMATION
  Report Type: Spontaneous
  Country: SE (occurrence: SE)
  Receive Date: 20130430
  Receipt Date: 20130712
  Transmission Date: 20140515
  Serious: Yes (Life-Threatening, Hospitalization, Other)
  Sender: FDA-Public Use
  Company Number: SE-PFIZER INC-2011265391

PATIENT
  Age: 42 Year
  Sex: Female

DRUGS (7)
  1. LYRICA [Suspect]
     Indication: NERVE INJURY
     Dosage: 225 MG MORNING, 375 MG EVENING
     Route: 048
     Dates: start: 2007
  2. LYRICA [Suspect]
     Indication: NEURALGIA
     Dosage: 75 MG, 2X/DAY
  3. YASMIN 28 [Suspect]
     Dosage: 1 DF, 1X/DAY
     Dates: start: 20100915, end: 20110223
  4. WARAN [Suspect]
     Indication: PULMONARY EMBOLISM
     Dosage: UNK
     Route: 048
     Dates: start: 20111018, end: 201302
  5. QUTENZA [Concomitant]
     Indication: NEURALGIA
     Dosage: UNK
     Route: 062
     Dates: start: 2012
  6. QUTENZA [Concomitant]
     Indication: HYPERAESTHESIA
  7. SIMVASTATIN [Concomitant]
     Dosage: 20 MG, 1X/DAY
     Dates: start: 20130221

REACTIONS (9)
  - Pulmonary embolism [Recovered/Resolved]
  - Petit mal epilepsy [Not Recovered/Not Resolved]
  - Eye haemorrhage [Recovered/Resolved with Sequelae]
  - Loss of consciousness [Not Recovered/Not Resolved]
  - Weight increased [Recovered/Resolved with Sequelae]
  - Withdrawal syndrome [Recovering/Resolving]
  - Blunted affect [Recovering/Resolving]
  - Personality disorder [Not Recovered/Not Resolved]
  - Feeling abnormal [Not Recovered/Not Resolved]
